FAERS Safety Report 6341088-0 (Version None)
Quarter: 2009Q3

REPORT INFORMATION
  Report Type: 
  Country: None (occurrence: None)
  Receive Date: 20090904
  Receipt Date: 20090827
  Transmission Date: 20100115
  Serious: Yes (Other)
  Sender: FDA-Public Use
  Company Number: B0590279A

PATIENT
  Age: 25 Year
  Sex: Female
  Weight: 99 kg

DRUGS (1)
  1. LAMOTRIGINE [Suspect]
     Indication: EPILEPSY
     Dosage: 275MG PER DAY
     Route: 048
     Dates: start: 20020101

REACTIONS (1)
  - TYPE 2 DIABETES MELLITUS [None]
